FAERS Safety Report 25510739 (Version 1)
Quarter: 2025Q3

REPORT INFORMATION
  Report Type: Spontaneous
  Country: US (occurrence: US)
  Receive Date: 20250703
  Receipt Date: 20250703
  Transmission Date: 20251021
  Serious: No
  Sender: RADIUS PHARM
  Company Number: US-RADIUS HEALTH INC.-2024US006151

PATIENT
  Age: 75 Year
  Sex: Female

DRUGS (2)
  1. TYMLOS [Suspect]
     Active Substance: ABALOPARATIDE
     Indication: Product used for unknown indication
     Route: 058
     Dates: start: 20240702
  2. TYMLOS [Suspect]
     Active Substance: ABALOPARATIDE
     Route: 058
     Dates: start: 20240602, end: 20240701

REACTIONS (5)
  - Migraine [Recovering/Resolving]
  - Neck pain [Recovering/Resolving]
  - Coccydynia [Recovering/Resolving]
  - Product use complaint [Unknown]
  - Device use issue [Unknown]

NARRATIVE: CASE EVENT DATE: 20240602
